FAERS Safety Report 14316269 (Version 3)
Quarter: 2018Q1

REPORT INFORMATION
  Report Type: Report from Study
  Country: US (occurrence: US)
  Receive Date: 20171222
  Receipt Date: 20180302
  Transmission Date: 20180509
  Serious: Yes (Hospitalization, Other)
  Sender: FDA-Public Use
  Company Number: US-GILEAD-2017-0312036

PATIENT
  Age: 60 Year
  Sex: Male
  Weight: 91.61 kg

DRUGS (25)
  1. MIDAMOR [Concomitant]
     Active Substance: AMILORIDE HYDROCHLORIDE
  2. FLOVENT HFA [Concomitant]
     Active Substance: FLUTICASONE PROPIONATE
  3. LISINOPRIL. [Concomitant]
     Active Substance: LISINOPRIL
  4. VITAMIN A                          /00056001/ [Concomitant]
     Active Substance: RETINOL
  5. REMERON [Concomitant]
     Active Substance: MIRTAZAPINE
  6. AMBRISENTAN [Suspect]
     Active Substance: AMBRISENTAN
     Indication: PRODUCT USED FOR UNKNOWN INDICATION
     Dosage: 5 MG, QD
     Route: 065
     Dates: start: 20171019, end: 201711
  7. ADCIRCA [Concomitant]
     Active Substance: TADALAFIL
  8. COREG [Concomitant]
     Active Substance: CARVEDILOL
  9. SINEQUAN [Concomitant]
     Active Substance: DOXEPIN HYDROCHLORIDE
  10. FERROUS SULFATE. [Concomitant]
     Active Substance: FERROUS SULFATE
  11. ATIVAN [Concomitant]
     Active Substance: LORAZEPAM
  12. TIOTROPIUM [Concomitant]
     Active Substance: TIOTROPIUM
  13. VITAMIN C [Concomitant]
     Active Substance: ASCORBIC ACID
  14. VITAMIN D3 [Concomitant]
     Active Substance: CHOLECALCIFEROL
  15. COLCHICINE. [Concomitant]
     Active Substance: COLCHICINE
  16. LASIX [Concomitant]
     Active Substance: FUROSEMIDE
  17. LACTULOSE. [Concomitant]
     Active Substance: LACTULOSE
  18. ZOFRAN [Concomitant]
     Active Substance: ONDANSETRON HYDROCHLORIDE
  19. DUONEB [Concomitant]
     Active Substance: ALBUTEROL SULFATE\IPRATROPIUM BROMIDE
  20. MULTIVITAMIN                       /00097801/ [Concomitant]
     Active Substance: VITAMINS
  21. NORCO [Concomitant]
     Active Substance: ACETAMINOPHEN\HYDROCODONE BITARTRATE
  22. PRILOSEC [Concomitant]
     Active Substance: OMEPRAZOLE MAGNESIUM
  23. CIALIS [Concomitant]
     Active Substance: TADALAFIL
  24. KLOR-CON [Concomitant]
     Active Substance: POTASSIUM CHLORIDE
  25. TOFRANIL [Concomitant]
     Active Substance: IMIPRAMINE HYDROCHLORIDE

REACTIONS (7)
  - Oedema [Unknown]
  - Acute respiratory failure [Recovered/Resolved]
  - Hypoxia [Recovered/Resolved]
  - Gastric disorder [Unknown]
  - Dyspnoea paroxysmal nocturnal [Unknown]
  - Cardiomyopathy [Unknown]
  - Dyspnoea [Recovered/Resolved]
